FAERS Safety Report 13023416 (Version 1)
Quarter: 2016Q4

REPORT INFORMATION
  Report Type: Spontaneous
  Country: US (occurrence: US)
  Receive Date: 20161212
  Receipt Date: 20161212
  Transmission Date: 20170207
  Serious: Yes (Hospitalization)
  Sender: FDA-Public Use
  Company Number: None

PATIENT
  Age: 65 Year
  Sex: Female
  Weight: 63 kg

DRUGS (2)
  1. XIFAXAN [Suspect]
     Active Substance: RIFAXIMIN
     Indication: IRRITABLE BOWEL SYNDROME
     Dosage: ?          QUANTITY:21 TABLET(S);?
     Route: 048
     Dates: start: 20161207, end: 20161208
  2. XIFAXAN [Suspect]
     Active Substance: RIFAXIMIN
     Indication: GASTROINTESTINAL BACTERIAL OVERGROWTH
     Dosage: ?          QUANTITY:21 TABLET(S);?
     Route: 048
     Dates: start: 20161207, end: 20161208

REACTIONS (3)
  - Dysphagia [None]
  - Speech disorder [None]
  - Swollen tongue [None]

NARRATIVE: CASE EVENT DATE: 20161209
